FAERS Safety Report 7871155-1 (Version None)
Quarter: 2011Q4

REPORT INFORMATION
  Report Type: 
  Country: None (occurrence: None)
  Receive Date: 20111029
  Receipt Date: 20110225
  Transmission Date: 20120403
  Serious: No
  Sender: FDA-Public Use
  Company Number: US-AMGEN-USASP2011011108

PATIENT
  Age: 64 Year
  Sex: Male

DRUGS (1)
  1. ENBREL [Suspect]
     Indication: ANKYLOSING SPONDYLITIS
     Dosage: 25 MG, 2 TIMES/WK
     Dates: start: 20031231

REACTIONS (8)
  - ASTHENIA [None]
  - DRUG INEFFECTIVE [None]
  - ANKYLOSING SPONDYLITIS [None]
  - RHINORRHOEA [None]
  - BLOOD PRESSURE INCREASED [None]
  - POLLAKIURIA [None]
  - BACK PAIN [None]
  - NASAL CONGESTION [None]
